FAERS Safety Report 6924885-X (Version None)
Quarter: 2010Q3

REPORT INFORMATION
  Report Type: 
  Country: None (occurrence: None)
  Receive Date: 20100816
  Receipt Date: 20100805
  Transmission Date: 20110219
  Serious: No
  Sender: FDA-Public Use
  Company Number: US-JNJFOC-20100704244

PATIENT
  Sex: Male

DRUGS (2)
  1. FENTANYL CITRATE [Suspect]
     Indication: NECK PAIN
     Dosage: NDC NUMBER: 0781-7243-55
     Route: 062
  2. FENTANYL CITRATE [Suspect]
     Indication: BACK PAIN
     Dosage: NDC NUMBER: 0781-7243-55
     Route: 062

REACTIONS (2)
  - PRODUCT ADHESION ISSUE [None]
  - WRONG TECHNIQUE IN DRUG USAGE PROCESS [None]
